FAERS Safety Report 10913499 (Version 1)
Quarter: 2015Q1

REPORT INFORMATION
  Report Type: Report from Study
  Country: KR (occurrence: KR)
  Receive Date: 20150313
  Receipt Date: 20150313
  Transmission Date: 20150721
  Serious: Yes (Death)
  Sender: FDA-Public Use
  Company Number: KR-SA-2015SA030450

PATIENT

DRUGS (2)
  1. OXALIPLATIN. [Suspect]
     Active Substance: OXALIPLATIN
     Indication: OESOPHAGEAL CARCINOMA
     Dosage: ON DAY 1 OF EVERY 3 WEEK CYCLE
     Route: 042
  2. S-1 [Suspect]
     Active Substance: GIMERACIL\OTERACIL\TEGAFUR
     Indication: OESOPHAGEAL CARCINOMA
     Dosage: TWICE DAILY FOR 14 DAYS, REPEATED EVERY 3 WEEK CYCLE
     Route: 048

REACTIONS (2)
  - Mediastinitis [Fatal]
  - Empyema [Fatal]
